FAERS Safety Report 7243682-1 (Version None)
Quarter: 2011Q1

REPORT INFORMATION
  Report Type: 
  Country: None (occurrence: None)
  Receive Date: 20110125
  Receipt Date: 20110122
  Transmission Date: 20110831
  Serious: Yes (Death)
  Sender: FDA-Public Use
  Company Number: PHHY2011IN04941

PATIENT
  Age: 13 Year
  Sex: Female

DRUGS (1)
  1. ASUNRA [Suspect]

REACTIONS (2)
  - HAEMATEMESIS [None]
  - PARALYSIS [None]
